APPROVED DRUG PRODUCT: TRIJARDY XR
Active Ingredient: EMPAGLIFLOZIN; LINAGLIPTIN; METFORMIN HYDROCHLORIDE
Strength: 5MG;2.5MG;1GM
Dosage Form/Route: TABLET, EXTENDED RELEASE;ORAL
Application: N212614 | Product #001
Applicant: BOEHRINGER INGELHEIM PHARMACEUTICALS INC
Approved: Jan 27, 2020 | RLD: Yes | RS: No | Type: RX

PATENTS:
Patent 9949998 | Expires: Jun 11, 2034
Patent 10022379 | Expires: Apr 2, 2029
Patent 10406172 | Expires: Jun 15, 2030
Patent 10258637 | Expires: Apr 3, 2034
Patent 8551957 | Expires: Oct 14, 2029
Patent 11090323 | Expires: Apr 3, 2034
Patent 11564886 | Expires: Mar 7, 2032
Patent 12364700 | Expires: Jun 8, 2037
Patent 10596120 | Expires: Mar 7, 2032
Patent 10596120 | Expires: Mar 7, 2032
Patent 11833166 | Expires: Apr 3, 2034
Patent 11833166 | Expires: Apr 3, 2034
Patent 12115179 | Expires: Feb 11, 2030
Patent 8883805 | Expires: Nov 26, 2025
Patent 9155705 | Expires: May 21, 2030
Patent 7713938 | Expires: Apr 15, 2027
Patent 9415016 | Expires: Apr 2, 2029
Patent 7579449 | Expires: Aug 1, 2028
Patent 7579449*PED | Expires: Feb 1, 2029
Patent 7713938*PED | Expires: Oct 15, 2027
Patent 8551957*PED | Expires: Apr 14, 2030
Patent 8883805*PED | Expires: May 26, 2026
Patent 9949998*PED | Expires: Dec 11, 2034
Patent 10258637*PED | Expires: Oct 3, 2034
Patent 12115179*PED | Expires: Aug 11, 2030
Patent 11833166*PED | Expires: Oct 3, 2034
Patent 12364700*PED | Expires: Dec 8, 2037
Patent 11090323*PED | Expires: Oct 3, 2034